FAERS Safety Report 21692974 (Version 1)
Quarter: 2022Q4

REPORT INFORMATION
  Report Type: Spontaneous
  Country: CA (occurrence: CA)
  Receive Date: 20221207
  Receipt Date: 20221207
  Transmission Date: 20230113
  Serious: Yes (Other)
  Sender: FDA-Public Use
  Company Number: None

PATIENT
  Age: 46 Year
  Sex: Male
  Weight: 117 kg

DRUGS (9)
  1. METHOTREXATE [Suspect]
     Active Substance: METHOTREXATE
     Indication: Oligoarthritis
     Dosage: 730
     Route: 048
  2. SULFASALAZINE [Suspect]
     Active Substance: SULFASALAZINE
     Indication: Product used for unknown indication
     Route: 048
  3. HUMIRA [Suspect]
     Active Substance: ADALIMUMAB
     Indication: Ankylosing spondylitis
     Dosage: 1 EVERY 2 WEEKS, 617
     Route: 058
  4. INFLIXIMAB [Suspect]
     Active Substance: INFLIXIMAB
     Indication: Ankylosing spondylitis
     Dosage: 1 EVERY 8 WEEKS
     Route: 042
  5. METHOTREXATE [Suspect]
     Active Substance: METHOTREXATE
     Indication: Oligoarthritis
     Dosage: 1 EVERY 1 WEEKS
     Route: 048
  6. HUMIRA [Suspect]
     Active Substance: ADALIMUMAB
     Indication: Ankylosing spondylitis
     Dosage: 1 EVERY 2 WEEKS
     Route: 058
  7. HUMIRA [Suspect]
     Active Substance: ADALIMUMAB
     Indication: Ankylosing spondylitis
     Dosage: 1 EVERY 2 WEEKS, SOLUTION SUBCUTANEOUS, 160
     Route: 058
  8. HUMIRA [Suspect]
     Active Substance: ADALIMUMAB
     Indication: Ankylosing spondylitis
     Dosage: 1 EVERY 2 WEEKS
     Route: 058
  9. HUMIRA [Suspect]
     Active Substance: ADALIMUMAB
     Indication: Ankylosing spondylitis
     Dosage: 1 EVERY 1 WEEKS
     Route: 058

REACTIONS (15)
  - Ankylosing spondylitis [Recovered/Resolved]
  - Arthralgia [Recovered/Resolved]
  - Asthenia [Recovered/Resolved]
  - Cholecystitis [Recovered/Resolved]
  - Diarrhoea [Recovered/Resolved]
  - Drug intolerance [Recovered/Resolved]
  - Impaired quality of life [Recovered/Resolved]
  - Infection [Recovered/Resolved]
  - Nausea [Recovered/Resolved]
  - Oligoarthritis [Recovered/Resolved]
  - Pain [Recovered/Resolved]
  - Pneumonia [Recovered/Resolved]
  - Polymyalgia rheumatica [Recovered/Resolved]
  - Synovitis [Recovered/Resolved]
  - Off label use [Unknown]
